FAERS Safety Report 24751915 (Version 1)
Quarter: 2024Q4

REPORT INFORMATION
  Report Type: Report from Study
  Country: US (occurrence: US)
  Receive Date: 20241219
  Receipt Date: 20241219
  Transmission Date: 20250115
  Serious: Yes (Other)
  Sender: ABBVIE
  Company Number: US-ABBVIE-6048155

PATIENT
  Age: 59 Year
  Sex: Male

DRUGS (1)
  1. HUMIRA [Suspect]
     Active Substance: ADALIMUMAB
     Indication: Psoriasis
     Route: 058
     Dates: start: 20210401

REACTIONS (4)
  - Nerve compression [Unknown]
  - Spinal operation [Unknown]
  - Neuralgia [Unknown]
  - Transfusion [Unknown]

NARRATIVE: CASE EVENT DATE: 20241001
